FAERS Safety Report 9735619 (Version 2)
Quarter: 2014Q1

REPORT INFORMATION
  Report Type: Spontaneous
  Country: NO (occurrence: NO)
  Receive Date: 20131206
  Receipt Date: 20140101
  Transmission Date: 20141002
  Serious: No
  Sender: FDA-Public Use
  Company Number: PHHY2013NO140098

PATIENT
  Age: 66 Year
  Sex: Female

DRUGS (7)
  1. TASIGNA [Suspect]
     Indication: CHRONIC MYELOID LEUKAEMIA
     Dosage: 150 MG, BID
     Dates: start: 20131106
  2. VENTOLINE [Concomitant]
     Indication: ASTHMA
     Dosage: UNK UKN, PRN
     Dates: start: 1970
  3. PREDNISOLONE [Concomitant]
     Indication: RHEUMATIC DISORDER
     Dosage: 5 MG, QD
     Dates: start: 2008
  4. ENALAPRIL [Concomitant]
     Indication: HYPERTENSION
     Dosage: 10 MG, QD
     Dates: start: 1979
  5. LIPITOR [Concomitant]
     Indication: BLOOD CHOLESTEROL INCREASED
     Dosage: 20 MG, QD
     Dates: start: 1983
  6. NUELIN [Concomitant]
     Indication: ASTHMA
     Dosage: 0.5 DF, QD (250 MG-1/2 TABLET DAILY)
  7. ZYRTEC [Concomitant]
     Dosage: 10 MG, QD

REACTIONS (2)
  - Nausea [Not Recovered/Not Resolved]
  - Decreased appetite [Unknown]
